FAERS Safety Report 4889102-3 (Version None)
Quarter: 2005Q4

REPORT INFORMATION
  Report Type: 
  Country: None (occurrence: None)
  Receive Date: 20051215
  Receipt Date: 20051014
  Transmission Date: 20060501
  Serious: Yes (Hospitalization, Other)
  Sender: FDA-Public Use
  Company Number: 2005132708

PATIENT
  Age: 66 Year
  Sex: Female
  Weight: 104.3273 kg

DRUGS (5)
  1. BEXTRA [Suspect]
     Indication: PAIN
     Dosage: (1 IN 1 D),
     Dates: start: 20040101, end: 20040101
  2. BEXTRA [Suspect]
     Indication: SENILE ANKYLOSING VERTEBRAL HYPEROSTOSIS
     Dosage: (1 IN 1 D),
     Dates: start: 20040101, end: 20040101
  3. ATENOLOL [Concomitant]
  4. PREMARIN [Concomitant]
  5. ZYRTEC [Concomitant]

REACTIONS (6)
  - CHEST PAIN [None]
  - CORONARY ARTERY OCCLUSION [None]
  - PAIN [None]
  - PALPITATIONS [None]
  - STRESS [None]
  - WEIGHT DECREASED [None]
